FAERS Safety Report 15536470 (Version 2)
Quarter: 2018Q4

REPORT INFORMATION
  Report Type: Other
  Country: CA (occurrence: CA)
  Receive Date: 20181022
  Receipt Date: 20181120
  Transmission Date: 20190205
  Serious: Yes (Other)
  Sender: FDA-Public Use
  Company Number: CA-APOTEX-2018AP022652

PATIENT
  Age: 54 Year
  Sex: Female

DRUGS (3)
  1. TRAMADOL. [Suspect]
     Active Substance: TRAMADOL
     Indication: PAIN
     Dosage: UNK
     Route: 065
  2. GABAPENTIN. [Suspect]
     Active Substance: GABAPENTIN
     Indication: PAIN
     Dosage: UNK
     Route: 065
  3. AMITRIPTYLINE [Suspect]
     Active Substance: AMITRIPTYLINE
     Indication: PAIN
     Dosage: UNK
     Route: 065

REACTIONS (8)
  - Eye disorder [Unknown]
  - Rheumatoid arthritis [Unknown]
  - Therapeutic response changed [Unknown]
  - Localised infection [Unknown]
  - Back pain [Unknown]
  - Peripheral swelling [Unknown]
  - Drug effect incomplete [Unknown]
  - Drug intolerance [Unknown]
